FAERS Safety Report 9904805 (Version 1)
Quarter: 2013Q2

REPORT INFORMATION
  Report Type: Spontaneous
  Country: US (occurrence: None)
  Receive Date: 20130305
  Receipt Date: 20130305
  Transmission Date: 20140414
  Serious: Yes (Other)
  Sender: FDA-Public Use
  Company Number: 163-21880-12033635

PATIENT
  Age: 57 Year
  Sex: Male
  Weight: 63.5 kg

DRUGS (3)
  1. REVLIMID [Suspect]
     Indication: PLASMA CELL MYELOMA
     Dosage: 5 MG, 1 IN 1 D, PO
     Route: 048
     Dates: start: 20111001
  2. CALCIUM + VITAMIN D (LEKOIT CA) (UNKNOWN) [Concomitant]
  3. ENOXAPARIN (ENOXAPARIN) (UNKNOWN) [Concomitant]

REACTIONS (1)
  - Thrombosis [None]
